FAERS Safety Report 12350848 (Version 1)
Quarter: 2016Q2

REPORT INFORMATION
  Report Type: Spontaneous
  Country: US (occurrence: None)
  Receive Date: 20160509
  Receipt Date: 20160509
  Transmission Date: 20160815
  Serious: Yes (Life-Threatening)
  Sender: FDA-Public Use
  Company Number: None

PATIENT
  Age: 61 Year
  Sex: Female
  Weight: 62.6 kg

DRUGS (3)
  1. RISPERDONE [Suspect]
     Active Substance: RISPERIDONE
     Indication: DRUG THERAPY
     Dosage: 25MG 1 TAB + VACCINE 1 DAILY BEDTIME BY MOUTH + VACCINE
     Route: 048
     Dates: start: 20160312, end: 20160429
  2. HYDROCORTIZONE [Concomitant]
     Active Substance: HYDROCORTISONE
  3. FLORINET [Concomitant]

REACTIONS (7)
  - Brain stem syndrome [None]
  - Delusion [None]
  - Musculoskeletal stiffness [None]
  - Constipation [None]
  - Abdominal distension [None]
  - Palpitations [None]
  - Drug administration error [None]

NARRATIVE: CASE EVENT DATE: 20160312
